FAERS Safety Report 20314636 (Version 1)
Quarter: 2022Q1

REPORT INFORMATION
  Report Type: Spontaneous
  Country: US (occurrence: US)
  Receive Date: 20220110
  Receipt Date: 20220110
  Transmission Date: 20220424
  Serious: Yes (Death, Other)
  Sender: FDA-Public Use
  Company Number: US-AMNEAL PHARMACEUTICALS-2021-AMRX-05202

PATIENT

DRUGS (3)
  1. BUSULFAN [Suspect]
     Active Substance: BUSULFAN
     Indication: Glioblastoma
     Dosage: UNK
     Route: 065
  2. THIOTEPA [Suspect]
     Active Substance: THIOTEPA
     Indication: Glioblastoma
     Dosage: UNK
     Route: 065
  3. BICNU [Suspect]
     Active Substance: CARMUSTINE
     Indication: Glioblastoma
     Dosage: UNK
     Route: 065

REACTIONS (1)
  - Adverse event [Fatal]
